FAERS Safety Report 16917864 (Version 1)
Quarter: 2019Q4

REPORT INFORMATION
  Report Type: Spontaneous
  Country: FR (occurrence: FR)
  Receive Date: 20191015
  Receipt Date: 20191015
  Transmission Date: 20200122
  Serious: Yes (Other)
  Sender: FDA-Public Use
  Company Number: FR-TEVA-2019-FR-1120698

PATIENT
  Age: 71 Year
  Sex: Female
  Weight: 44 kg

DRUGS (3)
  1. LERCAN 10 MG, COMPRIME PELLICULRE SECABLE [Concomitant]
     Dosage: 1 DDF
     Route: 048
  2. CARBOPLATIN. [Suspect]
     Active Substance: CARBOPLATIN
     Indication: OVARIAN CANCER
     Dosage: 324 MG
     Route: 041
     Dates: start: 20190321, end: 20190731
  3. PROPRANOLOL [Concomitant]
     Active Substance: PROPRANOLOL HYDROCHLORIDE
     Dosage: 40 MG
     Route: 048

REACTIONS (2)
  - Erythema [Recovered/Resolved]
  - Infusion site reaction [Recovered/Resolved]

NARRATIVE: CASE EVENT DATE: 20190731
